FAERS Safety Report 15931394 (Version 2)
Quarter: 2019Q1

REPORT INFORMATION
  Report Type: Report from Study
  Country: None (occurrence: NL)
  Receive Date: 20190207
  Receipt Date: 20190212
  Transmission Date: 20190417
  Serious: Yes (Hospitalization, Other)
  Sender: FDA-Public Use
  Company Number: NL-ABBVIE-19S-114-2654599-00

PATIENT
  Sex: Female

DRUGS (1)
  1. DUODOPA [Suspect]
     Active Substance: CARBIDOPA\LEVODOPA
     Indication: PARKINSON^S DISEASE
     Dosage: MD: 7.1, CD: 3.1, ED: 2.5, CND: 1.8, END: 2.5?PATIENT USES AN EXTRA DOSE 2 TIMES A DAY.
     Route: 050
     Dates: start: 20160711

REACTIONS (12)
  - Emotional disorder [Not Recovered/Not Resolved]
  - Medical device pain [Not Recovered/Not Resolved]
  - Fibroma [Not Recovered/Not Resolved]
  - Thinking abnormal [Not Recovered/Not Resolved]
  - Fatigue [Not Recovered/Not Resolved]
  - Stoma site infection [Unknown]
  - Medical device removal [Not Recovered/Not Resolved]
  - Dyskinesia [Not Recovered/Not Resolved]
  - Stoma site erythema [Not Recovered/Not Resolved]
  - Stoma site inflammation [Not Recovered/Not Resolved]
  - Impaired healing [Not Recovered/Not Resolved]
  - Malaise [Not Recovered/Not Resolved]
